FAERS Safety Report 7932596-7 (Version None)
Quarter: 2011Q4

REPORT INFORMATION
  Report Type: 
  Country: None (occurrence: None)
  Receive Date: 20111122
  Receipt Date: 20111121
  Transmission Date: 20120403
  Serious: No
  Sender: FDA-Public Use
  Company Number: US-BIOGENIDEC-2011BI044414

PATIENT
  Sex: Female

DRUGS (4)
  1. TYSABRI [Suspect]
     Indication: MULTIPLE SCLEROSIS
     Route: 042
     Dates: start: 20111025
  2. AVONEX [Concomitant]
     Indication: MULTIPLE SCLEROSIS
     Route: 030
     Dates: start: 20020502
  3. TYSABRI [Suspect]
     Route: 042
     Dates: start: 20070309, end: 20100910
  4. AVONEX [Concomitant]
     Route: 030

REACTIONS (4)
  - DIPLOPIA [None]
  - HYPOAESTHESIA [None]
  - DIZZINESS [None]
  - MENTAL IMPAIRMENT [None]
